FAERS Safety Report 6542737-4 (Version None)
Quarter: 2010Q1

REPORT INFORMATION
  Report Type: 
  Country: None (occurrence: None)
  Receive Date: 20100119
  Receipt Date: 20100108
  Transmission Date: 20100710
  Serious: Yes (Death, Hospitalization, Other)
  Sender: FDA-Public Use
  Company Number: US-BAXTER-2010BH000613

PATIENT
  Age: 49 Year
  Sex: Female

DRUGS (2)
  1. DIANEAL [Suspect]
     Indication: PERITONEAL DIALYSIS
     Route: 033
     Dates: start: 20050601, end: 20091106
  2. PREDNISONE [Suspect]
     Indication: ORGANISING PNEUMONIA
     Route: 048
     Dates: start: 20090101

REACTIONS (3)
  - CALCIPHYLAXIS [None]
  - CARDIAC DISORDER [None]
  - ORGANISING PNEUMONIA [None]
